FAERS Safety Report 11917358 (Version 2)
Quarter: 2016Q1

REPORT INFORMATION
  Report Type: Spontaneous
  Country: CA (occurrence: CA)
  Receive Date: 20160114
  Receipt Date: 20160125
  Transmission Date: 20160526
  Serious: Yes (Other)
  Sender: FDA-Public Use
  Company Number: CA-HORIZON-VIM-0003-2016

PATIENT
  Age: 68 Year
  Sex: Male

DRUGS (2)
  1. ZOLADEX LA [Interacting]
     Active Substance: GOSERELIN ACETATE
     Indication: PROSTATE CANCER
     Dosage: DAILY DOSE: 10.8 MG MILLGRAM(S) EVERY 3 MONTHS
     Route: 058
     Dates: start: 20150513
  2. VIMOVO [Suspect]
     Active Substance: ESOMEPRAZOLE MAGNESIUM\NAPROXEN
     Indication: LIGAMENT SPRAIN
     Route: 048

REACTIONS (7)
  - Nightmare [Unknown]
  - Fall [Unknown]
  - Injection site haemorrhage [Unknown]
  - Drug interaction [Unknown]
  - Eye contusion [Unknown]
  - Ligament sprain [Unknown]
  - Contusion [Unknown]
